FAERS Safety Report 5606736-9 (Version None)
Quarter: 2008Q1

REPORT INFORMATION
  Report Type: 
  Country: None (occurrence: None)
  Receive Date: 20080129
  Receipt Date: 20080121
  Transmission Date: 20080703
  Serious: Yes (Hospitalization)
  Sender: FDA-Public Use
  Company Number: SE-PFIZER INC-2005015941

PATIENT
  Age: 72 Year
  Sex: Male

DRUGS (10)
  1. CABERGOLINE [Suspect]
     Indication: PARKINSON'S DISEASE
     Route: 048
     Dates: start: 20010101, end: 20030905
  2. HEMINEVRIN [Concomitant]
  3. ALVEDON [Concomitant]
  4. OXYCONTIN [Concomitant]
     Route: 048
  5. CIPRAMIL [Concomitant]
     Route: 048
  6. DUROFERON [Concomitant]
     Route: 048
  7. ZAROXOLYN [Concomitant]
  8. FURIX [Concomitant]
  9. KALCITENA [Concomitant]
     Route: 048
  10. ALLOPURINOL [Concomitant]
     Route: 048

REACTIONS (2)
  - LUNG INFILTRATION [None]
  - PLEURAL FIBROSIS [None]
